FAERS Safety Report 11642199 (Version 1)
Quarter: 2015Q4

REPORT INFORMATION
  Report Type: Spontaneous
  Country: US (occurrence: US)
  Receive Date: 20151019
  Receipt Date: 20151019
  Transmission Date: 20160304
  Serious: No
  Sender: FDA-Public Use
  Company Number: US-PFIZER INC-2015333981

PATIENT
  Sex: Female
  Weight: 57 kg

DRUGS (1)
  1. ADVIL PM [Suspect]
     Active Substance: DIPHENHYDRAMINE CITRATE\IBUPROFEN
     Indication: ARTHRITIS
     Dosage: NIGHTLY

REACTIONS (5)
  - Foreign body [Unknown]
  - Dysphagia [Unknown]
  - Product difficult to swallow [Unknown]
  - Product size issue [Unknown]
  - Off label use [Unknown]
